FAERS Safety Report 25971098 (Version 1)
Quarter: 2025Q4

REPORT INFORMATION
  Report Type: Spontaneous
  Country: US (occurrence: US)
  Receive Date: 20251028
  Receipt Date: 20251028
  Transmission Date: 20260118
  Serious: Yes (Life-Threatening, Hospitalization)
  Sender: AMGEN
  Company Number: US-AMGEN-USASP2025210313

PATIENT
  Age: 75 Year
  Sex: Male

DRUGS (5)
  1. RITUXIMAB [Suspect]
     Active Substance: RITUXIMAB
     Indication: Diffuse large B-cell lymphoma
     Dosage: UNK
     Route: 065
  2. PREDNISONE [Suspect]
     Active Substance: PREDNISONE
     Indication: Diffuse large B-cell lymphoma
     Dosage: UNK
     Route: 065
  3. DOXORUBICIN [Suspect]
     Active Substance: DOXORUBICIN
     Indication: Diffuse large B-cell lymphoma
     Dosage: UNK (MORE THAN 250MG/M2)
     Route: 065
  4. CYCLOPHOSPHAMIDE [Concomitant]
     Active Substance: CYCLOPHOSPHAMIDE
     Indication: Diffuse large B-cell lymphoma
  5. VINCRISTINE [Concomitant]
     Active Substance: VINCRISTINE
     Indication: Diffuse large B-cell lymphoma

REACTIONS (10)
  - Cardiomyopathy [Recovering/Resolving]
  - Cardiac tamponade [Recovering/Resolving]
  - Heart failure with reduced ejection fraction [Recovering/Resolving]
  - Atrial fibrillation [Recovering/Resolving]
  - Cardiac failure acute [Recovering/Resolving]
  - Bradycardia [Recovering/Resolving]
  - Pericarditis [Recovering/Resolving]
  - Gastrointestinal haemorrhage [Unknown]
  - Hypotension [Unknown]
  - Pericardial effusion [Recovering/Resolving]
